FAERS Safety Report 21789353 (Version 1)
Quarter: 2022Q4

REPORT INFORMATION
  Report Type: Spontaneous
  Country: US (occurrence: None)
  Receive Date: 20221227
  Receipt Date: 20221227
  Transmission Date: 20230113
  Serious: Yes (Hospitalization)
  Sender: FDA-Public Use
  Company Number: None

PATIENT
  Age: 50 Year
  Sex: Male
  Weight: 99 kg

DRUGS (1)
  1. NIVOLUMAB [Suspect]
     Active Substance: NIVOLUMAB
     Indication: Neuroendocrine tumour
     Dosage: OTHER FREQUENCY : EVERY 28 DAYS;?
     Route: 040
     Dates: start: 20200114

REACTIONS (2)
  - Upper respiratory tract infection [None]
  - Pneumonia [None]

NARRATIVE: CASE EVENT DATE: 20221220
